FAERS Safety Report 21446507 (Version 7)
Quarter: 2022Q4

REPORT INFORMATION
  Report Type: Report from Study
  Country: JP (occurrence: JP)
  Receive Date: 20221012
  Receipt Date: 20221215
  Transmission Date: 20230113
  Serious: Yes (Hospitalization)
  Sender: FDA-Public Use
  Company Number: JP-JNJFOC-20220859520

PATIENT
  Age: 70 Year
  Sex: Male
  Weight: 77 kg

DRUGS (6)
  1. ERLEADA [Suspect]
     Active Substance: APALUTAMIDE
     Indication: Prostate cancer
     Route: 048
     Dates: start: 20220809, end: 20221006
  2. ACETAMINOPHEN\TRAMADOL HYDROCHLORIDE [Concomitant]
     Active Substance: ACETAMINOPHEN\TRAMADOL HYDROCHLORIDE
     Indication: Pain
     Dosage: DOSE UNKNOWN, IN THE MORNING/AFTERNOON/EVENING, AT BEDTIME
     Route: 048
     Dates: start: 202204, end: 202210
  3. LOXOPROFEN [Concomitant]
     Active Substance: LOXOPROFEN
     Indication: Pain
     Route: 048
     Dates: start: 202204, end: 202210
  4. MAGNESIUM OXIDE [Concomitant]
     Active Substance: MAGNESIUM OXIDE
     Indication: Constipation
     Dosage: AFTER EACH MEAL
     Route: 048
     Dates: start: 20220921
  5. TRANSAMIN [Concomitant]
     Active Substance: TRANEXAMIC ACID
     Indication: Haematuria
     Dosage: DOSE UNKNOWN
     Route: 048
     Dates: start: 20220929
  6. CARBAZOCHROME [Concomitant]
     Active Substance: CARBAZOCHROME
     Indication: Haematuria
     Dosage: DOSE UNKNOWN
     Route: 048
     Dates: start: 20220929

REACTIONS (24)
  - Dysuria [Not Recovered/Not Resolved]
  - Haematuria [Recovering/Resolving]
  - Ureteric obstruction [Recovering/Resolving]
  - Hospitalisation [Not Recovered/Not Resolved]
  - Dyschezia [Not Recovered/Not Resolved]
  - Constipation [Not Recovered/Not Resolved]
  - Nausea [Recovering/Resolving]
  - Dyspepsia [Recovering/Resolving]
  - Decreased appetite [Not Recovered/Not Resolved]
  - Hypophagia [Not Recovered/Not Resolved]
  - Weight decreased [Not Recovered/Not Resolved]
  - Pain [Recovering/Resolving]
  - Pain [Not Recovered/Not Resolved]
  - Prostatic specific antigen decreased [Not Recovered/Not Resolved]
  - Chromaturia [Not Recovered/Not Resolved]
  - Ureteral stent insertion [Not Recovered/Not Resolved]
  - Implant site paraesthesia [Not Recovered/Not Resolved]
  - Implant site pain [Not Recovered/Not Resolved]
  - Body temperature increased [Recovering/Resolving]
  - Physical deconditioning [Not Recovered/Not Resolved]
  - Rash [Recovering/Resolving]
  - Pruritus [Recovering/Resolving]
  - Abdominal distension [Not Recovered/Not Resolved]
  - Fluid intake reduced [Not Recovered/Not Resolved]

NARRATIVE: CASE EVENT DATE: 20220101
